FAERS Safety Report 5890193-1 (Version None)
Quarter: 2008Q3

REPORT INFORMATION
  Report Type: 
  Country: None (occurrence: None)
  Receive Date: 20080919
  Receipt Date: 20080908
  Transmission Date: 20090109
  Serious: Yes (Other)
  Sender: FDA-Public Use
  Company Number: GB-PFIZER INC-2008075761

PATIENT
  Sex: Male

DRUGS (1)
  1. LUSTRAL [Suspect]
     Dosage: DAILY DOSE:50MG
     Route: 048

REACTIONS (2)
  - ANTISOCIAL BEHAVIOUR [None]
  - EJACULATION FAILURE [None]
